FAERS Safety Report 22277457 (Version 1)
Quarter: 2023Q2

REPORT INFORMATION
  Report Type: Other
  Country: US (occurrence: None)
  Receive Date: 20230503
  Receipt Date: 20230503
  Transmission Date: 20230722
  Serious: Yes (Other)
  Sender: FDA-Public Use
  Company Number: US-ROCHE-3219282

PATIENT
  Age: 84 Year
  Sex: Female

DRUGS (1)
  1. ALECENSA [Suspect]
     Active Substance: ALECTINIB HYDROCHLORIDE
     Indication: Bronchial carcinoma
     Dosage: TAKE 4 CAPSULE(S) BY MOUTH EVERY 12 HOURS
     Route: 048

REACTIONS (4)
  - Dyspnoea [Unknown]
  - Fatigue [Unknown]
  - Dementia Alzheimer^s type [Unknown]
  - Intentional product misuse [Unknown]
